FAERS Safety Report 9973787 (Version 2)
Quarter: 2014Q1

REPORT INFORMATION
  Report Type: Spontaneous
  Country: US (occurrence: US)
  Receive Date: 20140306
  Receipt Date: 20140306
  Transmission Date: 20141002
  Serious: Yes (Other)
  Sender: FDA-Public Use
  Company Number: US-GILEAD-2013-0068534

PATIENT
  Age: 50 Year
  Sex: Female
  Weight: 64.4 kg

DRUGS (10)
  1. VIREAD [Suspect]
     Indication: HIV INFECTION
     Dosage: 300 UNKNOWN, QD
     Dates: start: 20070301, end: 20130124
  2. RETROVIR [Concomitant]
     Indication: HIV INFECTION
     Dosage: 300 UNKNOWN, BID
     Route: 065
     Dates: start: 20070301
  3. ATAZANAVIR W/RITONAVIR [Concomitant]
     Indication: HIV INFECTION
     Dosage: 1 DF, QD
     Route: 065
     Dates: start: 20070301
  4. LACTULOSE [Concomitant]
     Indication: ASCITES
     Dosage: 20 G, QD
  5. RIFAXIMIN [Concomitant]
     Indication: ENCEPHALOPATHY
     Dosage: 550 UNKNOWN, BID
     Route: 065
  6. ALDACTONE                          /00006201/ [Concomitant]
     Indication: ENCEPHALOPATHY
     Dosage: 100 UNKNOWN, QD
     Route: 065
  7. LEXAPRO [Concomitant]
     Indication: DEPRESSION
     Dosage: 20 UNKNOWN, QD
     Route: 065
  8. SEROQUEL [Concomitant]
     Indication: DEPRESSION
     Dosage: 400 UNKNOWN, QD
     Route: 065
  9. BONIVA [Concomitant]
     Indication: OSTEOPOROSIS
     Dosage: 150 UNKNOWN, Q1WK
     Route: 065
  10. FOLIC ACID W/THIAMINE [Concomitant]
     Indication: PRODUCT USED FOR UNKNOWN INDICATION
     Dosage: 1 DF, QD
     Route: 065

REACTIONS (1)
  - Fanconi syndrome acquired [Recovering/Resolving]
